FAERS Safety Report 10403163 (Version 1)
Quarter: 2014Q3

REPORT INFORMATION
  Report Type: Spontaneous
  Country: US (occurrence: None)
  Receive Date: 20140821
  Receipt Date: 20140821
  Transmission Date: 20150326
  Serious: Yes (Other)
  Sender: FDA-Public Use
  Company Number: None

PATIENT
  Age: 64 Year
  Sex: Female
  Weight: 88.6 kg

DRUGS (2)
  1. PROPOFOL. [Suspect]
     Active Substance: PROPOFOL
     Indication: SEDATION
     Route: 042
     Dates: start: 20140508
  2. PROPOFOL. [Suspect]
     Active Substance: PROPOFOL
     Indication: COLONOSCOPY
     Route: 042
     Dates: start: 20140508

REACTIONS (8)
  - Oropharyngeal pain [None]
  - Swollen tongue [None]
  - Swelling [None]
  - Lip swelling [None]
  - Cough [None]
  - Sinus disorder [None]
  - Crying [None]
  - Paranasal sinus hypersecretion [None]

NARRATIVE: CASE EVENT DATE: 20140508
